FAERS Safety Report 11031412 (Version 2)
Quarter: 2015Q2

REPORT INFORMATION
  Report Type: Spontaneous
  Country: CH (occurrence: None)
  Receive Date: 20150413
  Receipt Date: 20150416
  Transmission Date: 20150821
  Serious: Yes (Other)
  Sender: FDA-Public Use
  Company Number: KAD201504-000793

PATIENT
  Age: 47 Year
  Sex: Male
  Weight: 86 kg

DRUGS (5)
  1. IMOVANE [Concomitant]
     Active Substance: ZOPICLONE
  2. RIBAVIRIN (RIBAVIRIN) [Suspect]
     Active Substance: RIBAVIRIN
     Indication: HEPATITIS C
     Route: 048
     Dates: start: 20150123
  3. VIEKIRAX [Suspect]
     Active Substance: OMBITASVIR\PARITAPREVIR\RITONAVIR
     Indication: HEPATITIS C
     Route: 048
     Dates: start: 20150123
  4. EXVIERA (DASABUVIR) [Suspect]
     Active Substance: DASABUVIR
     Indication: HEPATITIS C
     Dosage: TABLET, 250 MG, 2 IN 1 D (500 MG)
     Route: 048
     Dates: start: 20150123
  5. NEXIUM [Concomitant]
     Active Substance: ESOMEPRAZOLE MAGNESIUM

REACTIONS (1)
  - Hyperbilirubinaemia [None]

NARRATIVE: CASE EVENT DATE: 20150130
